FAERS Safety Report 22598639 (Version 1)
Quarter: 2023Q2

REPORT INFORMATION
  Report Type: Spontaneous
  Country: TW (occurrence: None)
  Receive Date: 20230614
  Receipt Date: 20230614
  Transmission Date: 20230721
  Serious: Yes (Life-Threatening, Other)
  Sender: FDA-Public Use
  Company Number: 2023A134938

PATIENT
  Age: 78 Year
  Sex: Female
  Weight: 56 kg

DRUGS (1)
  1. DAPAGLIFLOZIN [Suspect]
     Active Substance: DAPAGLIFLOZIN
     Route: 048

REACTIONS (5)
  - Euglycaemic diabetic ketoacidosis [Unknown]
  - Acute respiratory failure [Unknown]
  - Septic shock [Unknown]
  - Acute kidney injury [Unknown]
  - Cardiac failure [Unknown]
